FAERS Safety Report 8599335-0 (Version None)
Quarter: 2012Q3

REPORT INFORMATION
  Report Type: 
  Country: None (occurrence: None)
  Receive Date: 20120816
  Receipt Date: 20120810
  Transmission Date: 20120928
  Serious: Yes (Life-Threatening, Hospitalization, Other)
  Sender: FDA-Public Use
  Company Number: GB-TEVA-351866USA

PATIENT
  Sex: Female
  Weight: 72.6 kg

DRUGS (6)
  1. FUROSEMIDE [Concomitant]
     Dates: start: 20120530
  2. LORATADINE [Concomitant]
     Dates: start: 20120627
  3. TREANDA [Suspect]
     Indication: CHRONIC LYMPHOCYTIC LEUKAEMIA
     Route: 042
     Dates: start: 20120704
  4. OMEPRAZOLE [Concomitant]
     Dosage: 20 MILLIGRAM DAILY;
     Route: 048
  5. OFATUMUMAB [Suspect]
     Indication: CHRONIC LYMPHOCYTIC LEUKAEMIA
     Dosage: UNKNOWN/D
     Route: 042
     Dates: start: 20120704
  6. AMILORIDE HYDROCHLORIDE [Concomitant]
     Dates: start: 20120627

REACTIONS (1)
  - PSORIASIS [None]
